FAERS Safety Report 4312446-0 (Version None)
Quarter: 2004Q1

REPORT INFORMATION
  Report Type: 
  Country: None (occurrence: None)
  Receive Date: 20040305
  Receipt Date: 20040223
  Transmission Date: 20041129
  Serious: Yes (Life-Threatening, Hospitalization)
  Sender: FDA-Public Use
  Company Number: US-ROCHE-359796

PATIENT
  Age: 50 Year
  Sex: Female

DRUGS (2)
  1. SORIATANE [Suspect]
     Indication: PSORIASIS
     Route: 048
     Dates: start: 20031001, end: 20031206
  2. TUMS [Concomitant]
     Route: 048
     Dates: end: 20031215

REACTIONS (7)
  - DEHYDRATION [None]
  - DRY SKIN [None]
  - FATIGUE [None]
  - HEPATIC FAILURE [None]
  - HEPATIC NECROSIS [None]
  - HEPATITIS [None]
  - SOMNOLENCE [None]
